FAERS Safety Report 9813084 (Version 1)
Quarter: 2014Q1

REPORT INFORMATION
  Report Type: Spontaneous
  Country: US (occurrence: None)
  Receive Date: 20140110
  Receipt Date: 20140110
  Transmission Date: 20141002
  Serious: Yes (Other)
  Sender: FDA-Public Use
  Company Number: None

PATIENT
  Age: 48 Year
  Sex: Female
  Weight: 119.3 kg

DRUGS (7)
  1. LEVEMIR INSULIN [Suspect]
     Indication: DIABETES MELLITUS INADEQUATE CONTROL
     Dosage: 20 UNITS, ONCE DAILY AT BEDTIME, INJECTION
     Dates: start: 20131231
  2. LEVEMIR INSULIN [Suspect]
     Indication: BLOOD GLUCOSE INCREASED
     Dosage: 20 UNITS, ONCE DAILY AT BEDTIME, INJECTION
     Dates: start: 20131231
  3. EFFEXOR XL [Concomitant]
  4. WELLBUTRIN XL [Concomitant]
  5. BENEZEPRIL [Concomitant]
  6. AMBIEN (GENERIC) 10MG [Concomitant]
  7. MIRAPEX (GENERIC) [Concomitant]

REACTIONS (2)
  - Injection site swelling [None]
  - Injection site erythema [None]
